FAERS Safety Report 24254063 (Version 1)
Quarter: 2024Q3

REPORT INFORMATION
  Report Type: Spontaneous
  Country: US (occurrence: US)
  Receive Date: 20240827
  Receipt Date: 20240827
  Transmission Date: 20241017
  Serious: Yes (Hospitalization, Other)
  Sender: AMGEN
  Company Number: US-AMGEN-USASP2024167520

PATIENT
  Sex: Female

DRUGS (9)
  1. PREDNISONE [Suspect]
     Active Substance: PREDNISONE
     Indication: Scleritis
     Dosage: 1 MILLIGRAM/KILOGRAM
     Route: 065
  2. PREDNISONE [Suspect]
     Active Substance: PREDNISONE
     Dosage: UNK, QD (MAINTENANCE DOSE BETWEEN 10 AND 15 MG/DAY)
     Route: 065
  3. INFLIXIMAB [Concomitant]
     Active Substance: INFLIXIMAB
     Indication: Scleritis
     Dosage: 5 MILLIGRAM/KILOGRAM, Q6WK
     Route: 065
  4. METHOTREXATE [Concomitant]
     Active Substance: METHOTREXATE
     Indication: Scleritis
     Dosage: 25 MILLIGRAM, QWK
     Route: 065
  5. CYCLOPHOSPHAMIDE [Concomitant]
     Active Substance: CYCLOPHOSPHAMIDE
     Indication: Scleritis
     Dosage: UNK
  6. TOCILIZUMAB [Concomitant]
     Active Substance: TOCILIZUMAB
     Indication: Scleritis
     Dosage: UNK
  7. MYCOPHENOLATE MOFETIL [Concomitant]
     Active Substance: MYCOPHENOLATE MOFETIL
     Indication: Scleritis
     Dosage: UNK
  8. RITUXIMAB [Concomitant]
     Active Substance: RITUXIMAB
     Indication: Scleritis
     Dosage: UNK
  9. CORTICOTROPIN [Concomitant]
     Active Substance: CORTICOTROPIN
     Indication: Scleritis
     Dosage: UNK

REACTIONS (8)
  - Cellulitis orbital [Recovered/Resolved]
  - Necrotising scleritis [Recovered/Resolved]
  - Granulomatosis with polyangiitis [Unknown]
  - Sinusitis [Unknown]
  - Pneumonia [Unknown]
  - Cellulitis [Unknown]
  - Hyperglycaemia [Unknown]
  - Off label use [Unknown]
